FAERS Safety Report 17803575 (Version 1)
Quarter: 2020Q2

REPORT INFORMATION
  Report Type: Spontaneous
  Country: US (occurrence: US)
  Receive Date: 20200519
  Receipt Date: 20200519
  Transmission Date: 20200714
  Serious: Yes (Hospitalization)
  Sender: FDA-Public Use
  Company Number: None

PATIENT
  Age: 52 Year
  Sex: Female

DRUGS (4)
  1. HUMIRA [Suspect]
     Active Substance: ADALIMUMAB
     Indication: PSORIASIS
     Dosage: ?          OTHER FREQUENCY:EVERY TWO WEEKS;?
     Route: 058
     Dates: start: 20190315
  2. GABAPENTIN, METOPROLOL SUCCINATE, TAMOXIFEN, DESVENLAFAX, LOSARTAN POT [Concomitant]
  3. METHOTREXATE, FOLIC ACID, VITAMIN D3, PANTOPRAZOLE, NYSTATIN [Concomitant]
  4. LATUDA, LITHIUM CARBONATE, NOVOLOG, ROPINIROLE, CONTOUR [Concomitant]

REACTIONS (1)
  - Diabetic ketoacidosis [None]

NARRATIVE: CASE EVENT DATE: 20200501
